FAERS Safety Report 4916249-5 (Version None)
Quarter: 2006Q1

REPORT INFORMATION
  Report Type: 
  Country: None (occurrence: None)
  Receive Date: 20060217
  Receipt Date: 20050421
  Transmission Date: 20060701
  Serious: Yes (Hospitalization, Disabling)
  Sender: FDA-Public Use
  Company Number: US-MERCK-0504USA04234

PATIENT
  Age: 79 Year
  Sex: Female
  Weight: 79 kg

DRUGS (2)
  1. VIOXX [Suspect]
     Indication: ARTHRALGIA
     Route: 048
     Dates: start: 20010401, end: 20031226
  2. VIOXX [Suspect]
     Indication: ARTHRITIS
     Route: 048
     Dates: start: 20010401, end: 20031226

REACTIONS (8)
  - ARTHROPATHY [None]
  - CATARACT [None]
  - CEREBROVASCULAR ACCIDENT [None]
  - FALL [None]
  - MYOCARDIAL INFARCTION [None]
  - POLYTRAUMATISM [None]
  - PULMONARY EMBOLISM [None]
  - SKIN LACERATION [None]
